FAERS Safety Report 7341962-2 (Version None)
Quarter: 2011Q1

REPORT INFORMATION
  Report Type: 
  Country: None (occurrence: None)
  Receive Date: 20110309
  Receipt Date: 20110225
  Transmission Date: 20110831
  Serious: Yes (Other)
  Sender: FDA-Public Use
  Company Number: JP-PFIZER INC-2011050288

PATIENT
  Sex: Female

DRUGS (11)
  1. ASPIRIN [Concomitant]
     Dosage: 100 MG, 1X/DAY
     Route: 048
  2. ALFAROL [Concomitant]
     Indication: OSTEOPOROSIS
     Dosage: 0.5 MG, 1X/DAY
     Route: 048
  3. LOCHOL [Concomitant]
     Indication: HYPERLIPIDAEMIA
     Dosage: 20 MG, 1X/DAY
     Route: 048
  4. PAXIL [Suspect]
     Indication: DEPRESSION
     Dosage: 20 MG, UNK
     Route: 048
     Dates: end: 20080425
  5. GLUCOBAY [Concomitant]
     Indication: DIABETES MELLITUS
     Dosage: 200 MG, 1X/DAY
     Route: 048
  6. DIART [Concomitant]
     Indication: HYPERTENSION
     Dosage: 30 MG, 1X/DAY
     Route: 048
  7. AMLODIPINE [Suspect]
     Indication: HYPERTENSION
     Dosage: 2.5 MG, UNK
     Route: 048
     Dates: end: 20080425
  8. AMOXAN [Suspect]
     Dosage: 10 MG, UNK
     Route: 048
     Dates: end: 20080425
  9. NAUZELIN [Suspect]
     Indication: PROPHYLAXIS OF NAUSEA AND VOMITING
     Dosage: 10 MG, UNK
     Route: 048
     Dates: end: 20080425
  10. ASPARTATE POTASSIUM [Concomitant]
     Indication: ELECTROLYTE IMBALANCE
     Dosage: 600 MG, 1X/DAY
  11. DEPAS [Concomitant]
     Indication: DEPRESSION
     Dosage: 0.5 MG, 1X/DAY
     Route: 048

REACTIONS (1)
  - PARKINSONISM [None]
